FAERS Safety Report 7320617-4 (Version None)
Quarter: 2011Q1

REPORT INFORMATION
  Report Type: 
  Country: None (occurrence: None)
  Receive Date: 20110215
  Receipt Date: 20110204
  Transmission Date: 20110831
  Serious: Yes (Hospitalization)
  Sender: FDA-Public Use
  Company Number: 2011SP003899

PATIENT
  Age: 69 Year
  Sex: Male

DRUGS (7)
  1. ELTROMBOPAG (ELTROMBOPAG) [Suspect]
     Indication: THROMBOCYTOPENIA
     Dosage: 25 MG; QD; PO
     Route: 048
     Dates: start: 20100126, end: 20100208
  2. METOHEXAL (METOPROLOL TARTRATE) [Suspect]
     Indication: HYPERTENSION
     Dosage: 200 MG; QD; PO
  3. MOXONIDINE (MOXONIDINE) [Suspect]
     Indication: CORONARY ARTERY DISEASE
     Dosage: 0.4 MG; QD; PO
     Route: 048
     Dates: start: 20081001
  4. PEGINTERFERON ALFA-2B [Suspect]
     Indication: THROMBOCYTOPENIA
     Dosage: 25 MG; QD; PO
     Route: 048
     Dates: start: 20100209
  5. PEGINTERFERON ALFA-2B [Suspect]
     Indication: HEPATITIS C
     Dosage: 150 MCG;QW;SC
     Route: 058
     Dates: start: 20100209
  6. RIBAVIRIN [Suspect]
     Indication: HEPATITIS C
     Dosage: 1200 MG; PO  600 MG; PO
     Route: 048
     Dates: start: 20100316
  7. RIBAVIRIN [Suspect]
     Indication: HEPATITIS C
     Dosage: 1200 MG; PO  600 MG; PO
     Route: 048
     Dates: start: 20100209

REACTIONS (1)
  - SYNCOPE [None]
